FAERS Safety Report 8146210-1 (Version None)
Quarter: 2012Q1

REPORT INFORMATION
  Report Type: 
  Country: None (occurrence: None)
  Receive Date: 20120217
  Receipt Date: 20110506
  Transmission Date: 20120608
  Serious: No
  Sender: FDA-Public Use
  Company Number: US-ABBOTT-11P-163-0723941-00

PATIENT
  Sex: Female
  Weight: 108.96 kg

DRUGS (3)
  1. SIMCOR [Suspect]
     Indication: BLOOD CHOLESTEROL ABNORMAL
     Dosage: 500/20 AT BEDTIME
     Dates: start: 20100101
  2. UNKNOWN BLOOD PRESSURE MEDICATION [Concomitant]
     Indication: BLOOD PRESSURE
     Dates: start: 20100101, end: 20110101
  3. SIMCOR [Suspect]
     Dosage: 500/20 AT BEDTIME
     Dates: start: 20110301

REACTIONS (3)
  - FLUSHING [None]
  - BURNING SENSATION [None]
  - PRURITUS [None]
